FAERS Safety Report 6342574-X (Version None)
Quarter: 2009Q3

REPORT INFORMATION
  Report Type: 
  Country: None (occurrence: None)
  Receive Date: 20090908
  Receipt Date: 20051114
  Transmission Date: 20100115
  Serious: No
  Sender: FDA-Public Use
  Company Number: JP-ROCHE-425987

PATIENT
  Sex: Female
  Weight: 2.6 kg

DRUGS (2)
  1. OSELTAMIVIR [Suspect]
     Dates: start: 20050301, end: 20050302
  2. CALONAL [Concomitant]
     Dosage: DOSAGE: 1200MG.
     Dates: start: 20050301, end: 20050303

REACTIONS (2)
  - DRUG EXPOSURE DURING PREGNANCY [None]
  - NORMAL NEWBORN [None]
